FAERS Safety Report 23136404 (Version 1)
Quarter: 2023Q4

REPORT INFORMATION
  Report Type: Spontaneous
  Country: CN (occurrence: CN)
  Receive Date: 20231102
  Receipt Date: 20231102
  Transmission Date: 20240109
  Serious: Yes (Other)
  Sender: FDA-Public Use
  Company Number: CN-STRIDES ARCOLAB LIMITED-2023SP016219

PATIENT
  Age: 79 Year
  Sex: Female

DRUGS (9)
  1. PREDNISOLONE [Suspect]
     Active Substance: PREDNISOLONE
     Indication: Natural killer-cell leukaemia
     Dosage: 60 MILLIGRAM, FOR 5 DAYS
     Route: 065
  2. PREDNISOLONE [Suspect]
     Active Substance: PREDNISOLONE
     Dosage: UNK, DOSE WAS REDUCED LATER
     Route: 065
  3. ETOPOSIDE [Suspect]
     Active Substance: ETOPOSIDE
     Indication: Natural killer-cell leukaemia
     Dosage: 100 MILLIGRAM, FOR 2 DAYS
     Route: 065
  4. ETOPOSIDE [Suspect]
     Active Substance: ETOPOSIDE
     Dosage: UNK, DOSE WAS REDUCED LATER
     Route: 065
  5. VINCRISTINE [Suspect]
     Active Substance: VINCRISTINE
     Indication: Natural killer-cell leukaemia
     Dosage: 2 MILLIGRAM/SQ. METER, FOR 1 DAY
     Route: 065
  6. VINCRISTINE [Suspect]
     Active Substance: VINCRISTINE
     Dosage: UNK, DOSE WAS REDUCED LATER
     Route: 065
  7. TUCIDINOSTAT [Suspect]
     Active Substance: TUCIDINOSTAT
     Indication: Natural killer-cell leukaemia
     Dosage: 5 MILLIGRAM, EVERY OTHER DAY
     Route: 048
  8. CYCLOPHOSPHAMIDE [Suspect]
     Active Substance: CYCLOPHOSPHAMIDE
     Indication: Natural killer-cell leukaemia
     Dosage: 400 MILLIGRAM/SQ. METER, FOR 1 DAY
     Route: 065
  9. CYCLOPHOSPHAMIDE [Suspect]
     Active Substance: CYCLOPHOSPHAMIDE
     Dosage: UNK, DOSE WAS REDUCED LATER
     Route: 065

REACTIONS (2)
  - Neutropenia [Recovered/Resolved]
  - Off label use [Unknown]
